FAERS Safety Report 8138312-0 (Version None)
Quarter: 2012Q1

REPORT INFORMATION
  Report Type: 
  Country: None (occurrence: None)
  Receive Date: 20120215
  Receipt Date: 20120206
  Transmission Date: 20120608
  Serious: Yes (Other)
  Sender: FDA-Public Use
  Company Number: US-JNJFOC-20120203522

PATIENT
  Sex: Male
  Weight: 102.06 kg

DRUGS (1)
  1. STELARA [Suspect]
     Indication: PSORIASIS
     Route: 058
     Dates: start: 20110101, end: 20111001

REACTIONS (3)
  - BRONCHITIS [None]
  - THERAPEUTIC RESPONSE DECREASED [None]
  - SINUSITIS [None]
